FAERS Safety Report 11080725 (Version 2)
Quarter: 2015Q2

REPORT INFORMATION
  Report Type: Other
  Country: US (occurrence: US)
  Receive Date: 20150501
  Receipt Date: 20150522
  Transmission Date: 20150821
  Serious: Yes (Death, Other)
  Sender: FDA-Public Use
  Company Number: US-SHIRE-US201503701

PATIENT
  Age: 46 Year
  Sex: Female
  Weight: 108.84 kg

DRUGS (1)
  1. VYVANSE [Suspect]
     Active Substance: LISDEXAMFETAMINE DIMESYLATE
     Indication: SLEEP APNOEA SYNDROME
     Dosage: TWO 20MG CAPSULES, UNKNOWN (PER DAY)
     Route: 048
     Dates: start: 20141016

REACTIONS (8)
  - Intestinal ischaemia [Fatal]
  - Dyspnoea [Unknown]
  - Vasospasm [Fatal]
  - Product use issue [Not Recovered/Not Resolved]
  - Cardiac arrest [Unknown]
  - Loss of consciousness [Not Recovered/Not Resolved]
  - Pulmonary embolism [Fatal]
  - Shock [Fatal]

NARRATIVE: CASE EVENT DATE: 20141016
